FAERS Safety Report 8993548 (Version 1)
Quarter: 2013Q1

REPORT INFORMATION
  Report Type: Spontaneous
  Country: US (occurrence: US)
  Receive Date: 20130102
  Receipt Date: 20130102
  Transmission Date: 20140127
  Serious: No
  Sender: FDA-Public Use
  Company Number: US-009507513-1212USA005749

PATIENT
  Sex: Female

DRUGS (1)
  1. DR. SCHOLL^S FREEZE AWAY DUAL ACTION COMMON + PLANTAR WART REMOVER [Suspect]
     Indication: SKIN PAPILLOMA
     Dosage: UNK UNK, QD
     Route: 061
     Dates: start: 20120803

REACTIONS (5)
  - Application site discolouration [Not Recovered/Not Resolved]
  - Application site pain [Not Recovered/Not Resolved]
  - Condition aggravated [Unknown]
  - Inappropriate schedule of drug administration [Unknown]
  - Therapeutic product ineffective [Unknown]
